FAERS Safety Report 9136278 (Version 1)
Quarter: 2013Q1

REPORT INFORMATION
  Report Type: Report from Study
  Country: DE (occurrence: DE)
  Receive Date: 20130304
  Receipt Date: 20130304
  Transmission Date: 20140127
  Serious: Yes (Hospitalization)
  Sender: FDA-Public Use
  Company Number: DE-GLAXOSMITHKLINE-B0871924A

PATIENT
  Age: 47 Year
  Sex: Female
  Weight: 45 kg

DRUGS (4)
  1. LAPATINIB [Suspect]
     Indication: BREAST CANCER
     Dosage: 750MG PER DAY
     Route: 048
     Dates: start: 20121123
  2. TRASTUZUMAB [Suspect]
     Indication: BREAST CANCER
     Dosage: 270MG PER DAY
     Route: 042
     Dates: start: 20121123
  3. PACLITAXEL [Suspect]
     Indication: BREAST CANCER
     Dosage: 113.6MG PER DAY
     Route: 042
     Dates: start: 20121129
  4. DOXORUBICIN [Suspect]
     Indication: BREAST CANCER
     Dosage: 28.4MG PER DAY
     Route: 042
     Dates: start: 20121123

REACTIONS (2)
  - Pyrexia [Not Recovered/Not Resolved]
  - Influenza [Not Recovered/Not Resolved]
